FAERS Safety Report 23612474 (Version 1)
Quarter: 2024Q1

REPORT INFORMATION
  Report Type: Report from Study
  Country: ES (occurrence: ES)
  Receive Date: 20240308
  Receipt Date: 20240308
  Transmission Date: 20240410
  Serious: Yes (Hospitalization)
  Sender: FDA-Public Use
  Company Number: None

PATIENT
  Age: 76 Year
  Sex: Male

DRUGS (1)
  1. CLINDAMYCIN HYDROCHLORIDE [Suspect]
     Active Substance: CLINDAMYCIN HYDROCHLORIDE
     Indication: Post procedural cellulitis
     Dosage: 300 MG, 4X/DAY
     Dates: start: 20220611, end: 20220612

REACTIONS (2)
  - Oedema mouth [Recovering/Resolving]
  - Erythema [Recovering/Resolving]

NARRATIVE: CASE EVENT DATE: 20220612
